FAERS Safety Report 8112629-8 (Version None)
Quarter: 2012Q1

REPORT INFORMATION
  Report Type: 
  Country: None (occurrence: None)
  Receive Date: 20120203
  Receipt Date: 20120124
  Transmission Date: 20120608
  Serious: Yes (Other)
  Sender: FDA-Public Use
  Company Number: FR-NOVOPROD-343766

PATIENT
  Age: 67 Year
  Sex: Female

DRUGS (8)
  1. REPAGLINIDE [Suspect]
     Indication: TYPE 2 DIABETES MELLITUS
     Dosage: 1 MG, QD
     Route: 048
     Dates: start: 20110901
  2. EURELIX [Concomitant]
     Dosage: UNK
     Route: 048
  3. ENOXOR [Suspect]
     Dosage: UNK
     Dates: start: 20110901
  4. ENOXOR [Suspect]
     Dosage: 400 MG, QD
     Route: 048
     Dates: start: 20111212, end: 20111213
  5. DIAMICRON [Suspect]
     Indication: TYPE 2 DIABETES MELLITUS
     Dosage: 60 MG, QD
     Route: 048
  6. TRANDATE [Suspect]
     Indication: PRODUCT USED FOR UNKNOWN INDICATION
     Dosage: UNK
  7. CANDESARTAN CILEXETIL AND HYDROCHLOROTHIAZIDE [Concomitant]
     Dosage: UNK
     Route: 048
  8. ENOXOR [Suspect]
     Indication: URINARY TRACT INFECTION
     Dosage: UNK
     Dates: start: 20110501

REACTIONS (2)
  - CONVULSION [None]
  - HYPOGLYCAEMIA [None]
